FAERS Safety Report 9762814 (Version 2)
Quarter: 2013Q4

REPORT INFORMATION
  Report Type: Report from Study
  Country: US (occurrence: US)
  Receive Date: 20131216
  Receipt Date: 20131216
  Transmission Date: 20140711
  Serious: Yes (Hospitalization)
  Sender: FDA-Public Use
  Company Number: US-PFIZER INC-2013337901

PATIENT
  Age: 69 Year
  Sex: Female
  Weight: 56.3 kg

DRUGS (10)
  1. NO SUBJECT DRUG [Suspect]
     Indication: ADENOCARCINOMA OF COLON
     Dosage: NO DOSE GIVEN
  2. FLUOROURACIL [Suspect]
     Indication: ADENOCARCINOMA OF COLON
     Dosage: 400 MG/M2, IVP ON DAY 1 FOLLOWED BY
     Route: 042
     Dates: start: 20120611
  3. FLUOROURACIL [Suspect]
     Dosage: 2400 MG/M2, OVER 46-48 HOURS ON DAY 1
     Route: 042
     Dates: start: 20120611, end: 20120613
  4. LEUCOVORIN CALCIUM [Concomitant]
     Indication: ADENOCARCINOMA OF COLON
     Dosage: 400 MG/M2, OVER 2 HOURS ON DAY 1
     Route: 042
     Dates: start: 20120611, end: 20120611
  5. ELOXATIN [Concomitant]
     Indication: ADENOCARCINOMA OF COLON
     Dosage: 85 MG/M2, OVER 2 HOURS ON DAY 1
     Route: 042
     Dates: start: 20120611, end: 20120611
  6. ASPIRIN [Concomitant]
     Dosage: 81 MG, 2-3 TIMES A WEEK
  7. CRESTOR [Concomitant]
     Dosage: 10 MG, DAILY
  8. SINGULAIR [Concomitant]
     Dosage: 10 MG, DAILY
  9. SYNTHROID [Concomitant]
     Dosage: 0.05 MG, DAILY
  10. XALITAN [Concomitant]
     Dosage: 0.05 %, 1 DROP EACH EYE DAILY

REACTIONS (1)
  - Arteriospasm coronary [Recovered/Resolved]
